FAERS Safety Report 11591949 (Version 2)
Quarter: 2024Q4

REPORT INFORMATION
  Report Type: Report from Study
  Country: GB (occurrence: GB)
  Receive Date: 20151005
  Receipt Date: 20241023
  Transmission Date: 20250115
  Serious: Yes (Hospitalization)
  Sender: ROCHE
  Company Number: GB-ROCHE-1641664

PATIENT
  Sex: Female

DRUGS (2)
  1. TOCILIZUMAB [Suspect]
     Active Substance: TOCILIZUMAB
     Indication: Rheumatoid arthritis
     Route: 058
     Dates: start: 20151229
  2. TOCILIZUMAB [Suspect]
     Active Substance: TOCILIZUMAB

REACTIONS (4)
  - Myocardial infarction [Unknown]
  - Ulcer [Unknown]
  - Pain [Unknown]
  - Malaise [Unknown]
